FAERS Safety Report 8237894-8 (Version None)
Quarter: 2012Q1

REPORT INFORMATION
  Report Type: 
  Country: None (occurrence: None)
  Receive Date: 20120323
  Receipt Date: 20120315
  Transmission Date: 20120608
  Serious: Yes (Hospitalization)
  Sender: FDA-Public Use
  Company Number: 2012SP014525

PATIENT
  Age: 55 Year
  Sex: Male
  Weight: 71.4 kg

DRUGS (10)
  1. AMOXICILLIN [Concomitant]
  2. ACETAMINOPHEN [Concomitant]
  3. GABAPENTIN [Concomitant]
  4. VELCADE [Suspect]
     Indication: MULTIPLE MYELOMA
     Dosage: IV
     Route: 042
     Dates: start: 20101018, end: 20101110
  5. VELCADE [Suspect]
     Indication: MULTIPLE MYELOMA
     Dosage: IV
     Route: 042
     Dates: start: 20100927
  6. DEXAMETHASONE TAB [Suspect]
     Indication: MULTIPLE MYELOMA
     Dosage: 160;64 MG, QM, PO
     Route: 048
     Dates: start: 20100927, end: 20101017
  7. DEXAMETHASONE TAB [Suspect]
     Indication: MULTIPLE MYELOMA
     Dosage: 160;64 MG, QM, PO
     Route: 048
     Dates: start: 20101018, end: 20101109
  8. DOXORUBICIN HCL [Suspect]
     Indication: MULTIPLE MYELOMA
     Dosage: 64 MG, QM, IV
     Route: 042
     Dates: start: 20101018, end: 20101109
  9. DOXORUBICIN HCL [Suspect]
     Indication: MULTIPLE MYELOMA
     Dosage: 64 MG, QM, IV
     Route: 042
     Dates: start: 20100927, end: 20101017
  10. ENOXAPARIN SODIUM [Concomitant]

REACTIONS (5)
  - THERAPEUTIC PRODUCT INEFFECTIVE [None]
  - MULTIPLE MYELOMA [None]
  - STEM CELL TRANSPLANT [None]
  - NEOPLASM PROGRESSION [None]
  - DIARRHOEA [None]
